FAERS Safety Report 10344179 (Version 1)
Quarter: 2014Q3

REPORT INFORMATION
  Report Type: Spontaneous
  Country: US (occurrence: None)
  Receive Date: 20140725
  Receipt Date: 20140725
  Transmission Date: 20150326
  Serious: No
  Sender: FDA-Public Use
  Company Number: None

PATIENT
  Sex: Female

DRUGS (2)
  1. GENERIC CATAPRESS PATCH 0.2 [Suspect]
     Active Substance: CLONIDINE HYDROCHLORIDE
     Indication: AUTISM
     Dosage: 0.2 MG WEEKLY  SKIN PATCH
     Route: 062
  2. GENERIC CATAPRESS PATCH 0.2 [Suspect]
     Active Substance: CLONIDINE HYDROCHLORIDE
     Indication: WILLIAMS SYNDROME
     Dosage: 0.2 MG WEEKLY  SKIN PATCH
     Route: 062

REACTIONS (5)
  - Product substitution issue [None]
  - Drug ineffective [None]
  - Therapeutic response changed [None]
  - Agitation [None]
  - Product size issue [None]
